FAERS Safety Report 9543091 (Version 1)
Quarter: 2013Q3

REPORT INFORMATION
  Report Type: Spontaneous
  Country: US (occurrence: US)
  Receive Date: 20130923
  Receipt Date: 20130923
  Transmission Date: 20140515
  Serious: Yes (Other)
  Sender: FDA-Public Use
  Company Number: US-NAPPMUNDI-USA-2012-0081828

PATIENT
  Age: 31 Year
  Sex: Female

DRUGS (1)
  1. DILAUDID TABLET [Suspect]
     Indication: DRUG ABUSE
     Dosage: 2 MG, UNK

REACTIONS (1)
  - Drug abuse [Unknown]
